FAERS Safety Report 6443620-5 (Version None)
Quarter: 2009Q4

REPORT INFORMATION
  Report Type: 
  Country: None (occurrence: None)
  Receive Date: 20091117
  Receipt Date: 20091106
  Transmission Date: 20100525
  Serious: Yes (Death)
  Sender: FDA-Public Use
  Company Number: US-PFIZER INC-2009283875

PATIENT
  Sex: Male

DRUGS (1)
  1. EMCYT [Suspect]
     Indication: PROSTATE CANCER METASTATIC
     Dosage: 140 MG, 3X/DAY
     Route: 048
     Dates: start: 20090709, end: 20091005

REACTIONS (2)
  - DISEASE PROGRESSION [None]
  - PROSTATE CANCER METASTATIC [None]
